FAERS Safety Report 6551586-2 (Version None)
Quarter: 2010Q1

REPORT INFORMATION
  Report Type: 
  Country: None (occurrence: None)
  Receive Date: 20100120
  Receipt Date: 20100104
  Transmission Date: 20100710
  Serious: Yes (Disabling, Other)
  Sender: FDA-Public Use
  Company Number: 2007BM000205

PATIENT
  Age: 7 Year
  Sex: Male
  Weight: 14.6 kg

DRUGS (5)
  1. NAGLAZYME [Suspect]
     Indication: MUCOPOLYSACCHARIDOSIS VI
     Dosage: SEE IMAGE
     Route: 037
     Dates: start: 20070316, end: 20070622
  2. NAGLAZYME [Suspect]
     Indication: MUCOPOLYSACCHARIDOSIS VI
     Dosage: SEE IMAGE
     Route: 037
     Dates: start: 20071122, end: 20071122
  3. NAGLAZYME [Suspect]
     Indication: MUCOPOLYSACCHARIDOSIS VI
     Dosage: SEE IMAGE
     Route: 037
     Dates: start: 20071008, end: 20071201
  4. NAGLAZYME [Suspect]
     Indication: MUCOPOLYSACCHARIDOSIS VI
     Dosage: SEE IMAGE
     Route: 037
     Dates: start: 20080101, end: 20080320
  5. NAGLAZYME [Suspect]
     Indication: MUCOPOLYSACCHARIDOSIS VI
     Dosage: SEE IMAGE
     Route: 037
     Dates: start: 20081201

REACTIONS (14)
  - CERVICAL MYELOPATHY [None]
  - CLONUS [None]
  - CSF PROTEIN INCREASED [None]
  - DISEASE PROGRESSION [None]
  - EXTENSOR PLANTAR RESPONSE [None]
  - GAIT DISTURBANCE [None]
  - HYPERREFLEXIA [None]
  - HYPOTONIA [None]
  - MUSCLE SPASTICITY [None]
  - MUSCULAR WEAKNESS [None]
  - NUCLEAR MAGNETIC RESONANCE IMAGING BRAIN ABNORMAL [None]
  - OXYGEN SATURATION DECREASED [None]
  - PYRAMIDAL TRACT SYNDROME [None]
  - REDUCED BLADDER CAPACITY [None]
